FAERS Safety Report 4474916-4 (Version None)
Quarter: 2004Q4

REPORT INFORMATION
  Report Type: 
  Country: None (occurrence: None)
  Receive Date: 20041014
  Receipt Date: 20041005
  Transmission Date: 20050328
  Serious: Yes (Hospitalization, Disabling)
  Sender: FDA-Public Use
  Company Number: BR-MERCK-0410BRA00222

PATIENT
  Age: 71 Year
  Sex: Male

DRUGS (1)
  1. VIOXX [Suspect]
     Indication: TENDONITIS
     Route: 048
     Dates: start: 20040809, end: 20040815

REACTIONS (1)
  - MYOCARDIAL INFARCTION [None]
